FAERS Safety Report 4491770-5 (Version None)
Quarter: 2004Q4

REPORT INFORMATION
  Report Type: 
  Country: None (occurrence: None)
  Receive Date: 20041101
  Receipt Date: 20041020
  Transmission Date: 20050328
  Serious: Yes (Death, Hospitalization)
  Sender: FDA-Public Use
  Company Number: RS004790-J

PATIENT
  Age: 63 Year
  Sex: Male

DRUGS (1)
  1. PARIET       (RABEPRAZOLE) [Suspect]
     Indication: REFLUX OESOPHAGITIS
     Dosage: 20 MG, 1 IN 1 D, ORAL
     Route: 048
     Dates: start: 20040621, end: 20041017

REACTIONS (1)
  - DEATH [None]
